FAERS Safety Report 7406032-3 (Version None)
Quarter: 2011Q2

REPORT INFORMATION
  Report Type: 
  Country: None (occurrence: None)
  Receive Date: 20110411
  Receipt Date: 20110331
  Transmission Date: 20111010
  Serious: Yes (Other)
  Sender: FDA-Public Use
  Company Number: A0916769A

PATIENT
  Age: 39 Year
  Sex: Female

DRUGS (3)
  1. ALBUTEROL [Concomitant]
  2. VERAMYST [Concomitant]
  3. ADVAIR HFA [Suspect]
     Indication: ASTHMA
     Route: 055
     Dates: start: 20100401, end: 20110201

REACTIONS (1)
  - ADRENAL INSUFFICIENCY [None]
